FAERS Safety Report 15623604 (Version 1)
Quarter: 2018Q4

REPORT INFORMATION
  Report Type: Spontaneous
  Country: US (occurrence: US)
  Receive Date: 20181115
  Receipt Date: 20181115
  Transmission Date: 20190205
  Serious: No
  Sender: FDA-Public Use
  Company Number: US-BAYER-2018-197322

PATIENT
  Sex: Female

DRUGS (2)
  1. BETACONNECT [Suspect]
     Active Substance: DEVICE
     Dosage: UNK
  2. BETASERON [Suspect]
     Active Substance: INTERFERON BETA-1B
     Dosage: UNK

REACTIONS (2)
  - Underdose [None]
  - Device difficult to use [None]
